FAERS Safety Report 20783894 (Version 3)
Quarter: 2022Q3

REPORT INFORMATION
  Report Type: Report from Study
  Country: US (occurrence: US)
  Receive Date: 20220504
  Receipt Date: 20220722
  Transmission Date: 20221027
  Serious: Yes (Other)
  Sender: FDA-Public Use
  Company Number: US-BRISTOL-MYERS SQUIBB COMPANY-2022-026234

PATIENT
  Age: 28 Year
  Sex: Female
  Weight: 44.452 kg

DRUGS (1)
  1. ZEPOSIA [Suspect]
     Active Substance: OZANIMOD HYDROCHLORIDE
     Indication: Colitis ulcerative
     Route: 048
     Dates: start: 20220223

REACTIONS (5)
  - Haemorrhage [Unknown]
  - Drug ineffective [Recovered/Resolved]
  - Regressive behaviour [Unknown]
  - Pain [Unknown]
  - Gastrointestinal sounds abnormal [Unknown]
